FAERS Safety Report 7169609-9 (Version None)
Quarter: 2010Q4

REPORT INFORMATION
  Report Type: 
  Country: None (occurrence: None)
  Receive Date: 20101217
  Receipt Date: 20101214
  Transmission Date: 20110411
  Serious: Yes (Death)
  Sender: FDA-Public Use
  Company Number: GR-JNJFOC-20101100038

PATIENT
  Sex: Male

DRUGS (2)
  1. RISPERDAL CONSTA [Suspect]
     Indication: SCHIZOPHRENIA
     Route: 030
     Dates: end: 20101022
  2. RISPERDAL CONSTA [Suspect]
     Route: 030
     Dates: end: 20101022

REACTIONS (5)
  - COMPLETED SUICIDE [None]
  - INAPPROPRIATE SCHEDULE OF DRUG ADMINISTRATION [None]
  - OVERDOSE [None]
  - PERSONALITY DISORDER [None]
  - SUICIDE ATTEMPT [None]
